FAERS Safety Report 19180692 (Version 1)
Quarter: 2021Q2

REPORT INFORMATION
  Report Type: Report from Study
  Country: EG (occurrence: EG)
  Receive Date: 20210426
  Receipt Date: 20210426
  Transmission Date: 20210717
  Serious: Yes (Other)
  Sender: FDA-Public Use
  Company Number: NVSC2021EG091294

PATIENT
  Age: 44 Year
  Sex: Male

DRUGS (1)
  1. GILENYA [Suspect]
     Active Substance: FINGOLIMOD HYDROCHLORIDE
     Indication: MULTIPLE SCLEROSIS
     Dosage: 0.5 MG, QD
     Route: 048
     Dates: start: 20201201, end: 20201230

REACTIONS (2)
  - Visual impairment [Not Recovered/Not Resolved]
  - Movement disorder [Not Recovered/Not Resolved]

NARRATIVE: CASE EVENT DATE: 20210315
